FAERS Safety Report 20098667 (Version 10)
Quarter: 2022Q3

REPORT INFORMATION
  Report Type: Report from Study
  Country: MX (occurrence: MX)
  Receive Date: 20211122
  Receipt Date: 20220919
  Transmission Date: 20221026
  Serious: Yes (Hospitalization, Other)
  Sender: FDA-Public Use
  Company Number: MX-TAKEDA-MX202028003

PATIENT
  Age: 10 Year
  Sex: Male
  Weight: 30 kg

DRUGS (1)
  1. IDURSULFASE [Suspect]
     Active Substance: IDURSULFASE
     Indication: Mucopolysaccharidosis II
     Dosage: 2 DOSAGE FORM, 1/WEEK
     Route: 042

REACTIONS (6)
  - Haemorrhage [Recovering/Resolving]
  - Pyrexia [Recovering/Resolving]
  - Therapy interrupted [Recovering/Resolving]
  - COVID-19 immunisation [Recovering/Resolving]
  - Product dose omission issue [Recovering/Resolving]
  - Product availability issue [Recovering/Resolving]

NARRATIVE: CASE EVENT DATE: 20200825
